FAERS Safety Report 8311518-3 (Version None)
Quarter: 2012Q1

REPORT INFORMATION
  Report Type: 
  Country: None (occurrence: None)
  Receive Date: 20120315
  Receipt Date: 20110620
  Transmission Date: 20120608
  Serious: No
  Sender: FDA-Public Use
  Company Number: PHHY2010US84221

PATIENT
  Age: 44 Year
  Sex: Male
  Weight: 69.8 kg

DRUGS (1)
  1. GILENYA [Suspect]
     Indication: MULTIPLE SCLEROSIS
     Dosage: 0.5 MG, QD, ORAL
     Route: 048
     Dates: start: 20101208

REACTIONS (12)
  - PAIN IN EXTREMITY [None]
  - EYE PAIN [None]
  - FATIGUE [None]
  - FEELING HOT [None]
  - ASPARTATE AMINOTRANSFERASE INCREASED [None]
  - ALANINE AMINOTRANSFERASE INCREASED [None]
  - OCULAR DISCOMFORT [None]
  - EYE DISCHARGE [None]
  - THINKING ABNORMAL [None]
  - ERYTHEMA [None]
  - COUGH [None]
  - BLOOD CHOLESTEROL INCREASED [None]
